FAERS Safety Report 7892474-9 (Version None)
Quarter: 2011Q4

REPORT INFORMATION
  Report Type: 
  Country: None (occurrence: None)
  Receive Date: 20111104
  Receipt Date: 20111101
  Transmission Date: 20120403
  Serious: No
  Sender: FDA-Public Use
  Company Number: US-BAYER-2011-106456

PATIENT
  Age: 51 Year
  Sex: Male

DRUGS (1)
  1. NEXAVAR [Suspect]
     Indication: HEPATIC NEOPLASM MALIGNANT
     Dosage: UNK

REACTIONS (4)
  - PAIN [None]
  - PAIN IN EXTREMITY [None]
  - DIARRHOEA [None]
  - NAUSEA [None]
